FAERS Safety Report 5380162-2 (Version None)
Quarter: 2007Q3

REPORT INFORMATION
  Report Type: 
  Country: None (occurrence: None)
  Receive Date: 20070706
  Receipt Date: 20070507
  Transmission Date: 20080115
  Serious: No
  Sender: FDA-Public Use
  Company Number: A0650257A

PATIENT
  Age: 52 Year
  Sex: Female

DRUGS (7)
  1. TYKERB [Suspect]
     Indication: BREAST CANCER
     Dosage: 5TAB PER DAY
     Route: 048
     Dates: start: 20070428
  2. HERCEPTIN [Concomitant]
  3. AREDIA [Concomitant]
  4. SYNTHROID [Concomitant]
  5. AMARYL [Concomitant]
  6. WELLBUTRIN [Concomitant]
  7. COZAAR [Concomitant]

REACTIONS (3)
  - CHEILITIS [None]
  - DRY SKIN [None]
  - LIP OEDEMA [None]
